FAERS Safety Report 8349117-X (Version None)
Quarter: 2012Q2

REPORT INFORMATION
  Report Type: 
  Country: None (occurrence: None)
  Receive Date: 20120510
  Receipt Date: 20120430
  Transmission Date: 20120825
  Serious: Yes (Other)
  Sender: FDA-Public Use
  Company Number: US-SANOFI-AVENTIS-2012SA024469

PATIENT
  Sex: Male
  Weight: 97 kg

DRUGS (3)
  1. FLUCONAZOLE [Interacting]
     Dates: start: 20060101
  2. PLAVIX [Suspect]
     Route: 048
  3. FLUCONAZOLE [Interacting]
     Dates: start: 20090701, end: 20100201

REACTIONS (8)
  - NERVE INJURY [None]
  - PNEUMONIA [None]
  - FUNGAL INFECTION [None]
  - PULMONARY CONGESTION [None]
  - MUSCULAR WEAKNESS [None]
  - PRURITUS [None]
  - DRUG INTERACTION [None]
  - DRUG EFFECT DECREASED [None]
